FAERS Safety Report 18391653 (Version 1)
Quarter: 2020Q4

REPORT INFORMATION
  Report Type: Spontaneous
  Country: US (occurrence: US)
  Receive Date: 20201015
  Receipt Date: 20201015
  Transmission Date: 20210114
  Serious: No
  Sender: FDA-Public Use
  Company Number: None

PATIENT
  Age: 67 Year
  Sex: Female
  Weight: 69.4 kg

DRUGS (7)
  1. CAPECITABINE. [Suspect]
     Active Substance: CAPECITABINE
     Indication: COLON CANCER
     Route: 048
     Dates: start: 20201005, end: 20201015
  2. ASPIRIN. [Concomitant]
     Active Substance: ASPIRIN
  3. CALCIUM CARBONATE-VITAMIN D [Concomitant]
     Active Substance: CALCIUM CARBONATE\VITAMIN D
  4. ONDANSETRON [Concomitant]
     Active Substance: ONDANSETRON
  5. AVASTIN [Concomitant]
     Active Substance: BEVACIZUMAB
  6. LOSARTAN. [Concomitant]
     Active Substance: LOSARTAN
  7. CYANOCOBALAMIN. [Concomitant]
     Active Substance: CYANOCOBALAMIN

REACTIONS (4)
  - Therapy cessation [None]
  - Peripheral swelling [None]
  - Palmar-plantar erythrodysaesthesia syndrome [None]
  - Paraesthesia [None]

NARRATIVE: CASE EVENT DATE: 20201011
